FAERS Safety Report 21151809 (Version 1)
Quarter: 2022Q3

REPORT INFORMATION
  Report Type: Spontaneous
  Country: US (occurrence: US)
  Receive Date: 20220730
  Receipt Date: 20220730
  Transmission Date: 20221027
  Serious: No
  Sender: FDA-Public Use
  Company Number: US-JNJFOC-20220721392

PATIENT
  Sex: Female

DRUGS (2)
  1. CHILDRENS ZYRTEC ALLERGY [Suspect]
     Active Substance: CETIRIZINE HYDROCHLORIDE
     Indication: Pruritus
     Route: 065
  2. CHILDRENS ZYRTEC ALLERGY [Suspect]
     Active Substance: CETIRIZINE HYDROCHLORIDE
     Indication: Multiple allergies

REACTIONS (3)
  - Somnolence [Unknown]
  - Product use in unapproved indication [Unknown]
  - Therapeutic response unexpected [Unknown]
